FAERS Safety Report 17737282 (Version 1)
Quarter: 2020Q2

REPORT INFORMATION
  Report Type: Spontaneous
  Country: GB (occurrence: GB)
  Receive Date: 20200503
  Receipt Date: 20200503
  Transmission Date: 20200714
  Serious: Yes (Other)
  Sender: FDA-Public Use
  Company Number: GB-TEVA-2020-GB-1228494

PATIENT
  Age: 26 Year
  Sex: Female
  Weight: 58 kg

DRUGS (2)
  1. INSULIN [Concomitant]
     Active Substance: INSULIN NOS
  2. FOLIC ACID. [Suspect]
     Active Substance: FOLIC ACID
     Route: 048
     Dates: start: 20200212, end: 20200410

REACTIONS (4)
  - Non-cardiac chest pain [Unknown]
  - Gastrooesophageal reflux disease [Recovering/Resolving]
  - Throat tightness [Unknown]
  - Dyspepsia [Recovering/Resolving]

NARRATIVE: CASE EVENT DATE: 20200214
